FAERS Safety Report 6150700-0 (Version None)
Quarter: 2009Q2

REPORT INFORMATION
  Report Type: 
  Country: None (occurrence: None)
  Receive Date: 20090409
  Receipt Date: 20090401
  Transmission Date: 20091009
  Serious: Yes (Life-Threatening)
  Sender: FDA-Public Use
  Company Number: PHHY2009DE13363

PATIENT
  Sex: Male

DRUGS (2)
  1. SEBIVO [Suspect]
     Indication: HEPATITIS B
     Dosage: 600 MG, QD
     Route: 048
     Dates: start: 20080207, end: 20090214
  2. VIREAD [Suspect]
     Indication: HEPATITIS B
     Dosage: 245 MG
     Route: 048
     Dates: start: 20080724, end: 20090214

REACTIONS (2)
  - BLOOD GLUCOSE INCREASED [None]
  - PANCYTOPENIA [None]
